FAERS Safety Report 8388204-7 (Version None)
Quarter: 2012Q2

REPORT INFORMATION
  Report Type: 
  Country: None (occurrence: None)
  Receive Date: 20120525
  Receipt Date: 20120523
  Transmission Date: 20120825
  Serious: Yes (Other)
  Sender: FDA-Public Use
  Company Number: US-PFIZER INC-2012125356

PATIENT
  Sex: Female
  Weight: 69.388 kg

DRUGS (2)
  1. LYRICA [Suspect]
     Indication: FIBROMYALGIA
     Dosage: UNK, DAILY
     Route: 048
     Dates: start: 20111201, end: 20120401
  2. LYRICA [Suspect]
     Indication: OSTEOARTHRITIS

REACTIONS (5)
  - DISCOMFORT [None]
  - ABDOMINAL DISTENSION [None]
  - GASTRIC DISORDER [None]
  - PAIN [None]
  - WEIGHT INCREASED [None]
